FAERS Safety Report 5052011-3 (Version None)
Quarter: 2006Q3

REPORT INFORMATION
  Report Type: 
  Country: None (occurrence: None)
  Receive Date: 20060711
  Receipt Date: 20060626
  Transmission Date: 20061208
  Serious: Yes (Other)
  Sender: FDA-Public Use
  Company Number: 2006S1005865

PATIENT
  Sex: Female

DRUGS (2)
  1. HYDROCHLOROTHIAZIDE/TRIAMTERENE  (37.5 MG) [Suspect]
     Dosage: 37.5 MG; PO
     Route: 048
  2. DILTIAZEM TABLETS (120 MG) [Suspect]
     Dosage: 120 MG; PO
     Route: 048

REACTIONS (1)
  - CEREBROVASCULAR ACCIDENT [None]
